FAERS Safety Report 5098918-2 (Version None)
Quarter: 2006Q3

REPORT INFORMATION
  Report Type: 
  Country: None (occurrence: None)
  Receive Date: 20060905
  Receipt Date: 20060814
  Transmission Date: 20061208
  Serious: Yes (Hospitalization, Other)
  Sender: FDA-Public Use
  Company Number: CAR_0082_2006

PATIENT
  Age: 22 Year
  Sex: Male

DRUGS (4)
  1. FLUOXETINE [Suspect]
     Dosage: 20 MG QDAY PO
     Route: 048
  2. DEXTROMETHORPHAN HYDROBROMIDE [Suspect]
     Dosage: DF PO
     Route: 048
  3. LITHIUM [Concomitant]
  4. CLONAZEPAM [Concomitant]

REACTIONS (4)
  - INTENTIONAL DRUG MISUSE [None]
  - NYSTAGMUS [None]
  - SEROTONIN SYNDROME [None]
  - SINUS TACHYCARDIA [None]
